FAERS Safety Report 6213688-X (Version None)
Quarter: 2009Q2

REPORT INFORMATION
  Report Type: 
  Country: None (occurrence: None)
  Receive Date: 20090603
  Receipt Date: 20090526
  Transmission Date: 20091009
  Serious: Yes (Other)
  Sender: FDA-Public Use
  Company Number: PHHY2009DE20554

PATIENT
  Sex: Female

DRUGS (3)
  1. DIOVAN [Suspect]
     Indication: HYPERTENSION
     Dosage: 40 MG, BID
     Dates: start: 20090501
  2. CALCIUM [Concomitant]
     Indication: OSTEOPOROSIS
     Dosage: UNK
  3. FOSAMAX [Concomitant]
     Indication: OSTEOPOROSIS

REACTIONS (5)
  - CONDITION AGGRAVATED [None]
  - DEMENTIA [None]
  - DISORIENTATION [None]
  - FATIGUE [None]
  - MEMORY IMPAIRMENT [None]
